FAERS Safety Report 24883500 (Version 1)
Quarter: 2025Q1

REPORT INFORMATION
  Report Type: Spontaneous
  Country: US (occurrence: None)
  Receive Date: 20250123
  Receipt Date: 20250123
  Transmission Date: 20250409
  Serious: No
  Sender: FDA-CTU
  Company Number: None

PATIENT
  Age: 40 Year
  Sex: Female
  Weight: 56.25 kg

DRUGS (3)
  1. VILAZODONE [Suspect]
     Active Substance: VILAZODONE
     Indication: Depression
  2. NEXPLANON [Concomitant]
     Active Substance: ETONOGESTREL
  3. MAGNESIUM [Concomitant]
     Active Substance: MAGNESIUM

REACTIONS (1)
  - Hot flush [None]
